FAERS Safety Report 4731666-4 (Version None)
Quarter: 2005Q3

REPORT INFORMATION
  Report Type: 
  Country: None (occurrence: None)
  Receive Date: 20050802
  Receipt Date: 20050722
  Transmission Date: 20060218
  Serious: Yes (Life-Threatening)
  Sender: FDA-Public Use
  Company Number: JP-JNJFOC-20050705613

PATIENT
  Sex: Male

DRUGS (2)
  1. ITRIZOLE [Suspect]
     Indication: ONYCHOMYCOSIS
     Route: 048
     Dates: start: 20050602, end: 20050609
  2. CIMETIDINE [Concomitant]
     Dates: start: 20050602

REACTIONS (3)
  - ANOREXIA [None]
  - OEDEMA [None]
  - RESPIRATORY DISTRESS [None]
